FAERS Safety Report 8219405-6 (Version None)
Quarter: 2012Q1

REPORT INFORMATION
  Report Type: 
  Country: None (occurrence: None)
  Receive Date: 20120319
  Receipt Date: 20120307
  Transmission Date: 20120608
  Serious: Yes (Hospitalization, Congenital Anomaly)
  Sender: FDA-Public Use
  Company Number: DE-TEVA-326528GER

PATIENT
  Sex: Male

DRUGS (4)
  1. MESALAZIN [Concomitant]
     Route: 064
  2. INSULIN [Concomitant]
     Route: 064
  3. AMITRIPTYLINE HCL [Suspect]
     Route: 064
     Dates: start: 20090908, end: 20100616
  4. TILIDINE [Suspect]
     Route: 064
     Dates: start: 20090908, end: 20100616

REACTIONS (3)
  - CYST [None]
  - CONVULSION NEONATAL [None]
  - CONGENITAL CHOROID PLEXUS CYST [None]
